FAERS Safety Report 8017899-2 (Version None)
Quarter: 2012Q1

REPORT INFORMATION
  Report Type: 
  Country: None (occurrence: None)
  Receive Date: 20120103
  Receipt Date: 20111221
  Transmission Date: 20120608
  Serious: Yes (Hospitalization)
  Sender: FDA-Public Use
  Company Number: US-BAYER-2011-014811

PATIENT
  Age: 19 Year
  Sex: Female
  Weight: 88.435 kg

DRUGS (7)
  1. YASMIN [Suspect]
     Indication: POLYCYSTIC OVARIES
     Dosage: UNK
     Dates: start: 20060801, end: 20070701
  2. MEPERGAN [Concomitant]
  3. ZOSYN [Concomitant]
  4. ETHINYLESTRADIOL/NORGESTREL [Concomitant]
     Indication: POLYCYSTIC OVARIES
     Dosage: UNK
     Dates: start: 20070701, end: 20071001
  5. ETHINYL ESTRADIOL W/NORGESTREL [Concomitant]
     Indication: POLYCYSTIC OVARIES
     Dosage: UNK
     Dates: start: 20071001, end: 20071101
  6. ETHINYL ESTRADIOL W/NORGESTREL [Concomitant]
     Indication: CONTRACEPTION
  7. PHENTERMINE [Concomitant]
     Indication: WEIGHT DECREASED
     Dosage: UNK
     Route: 048
     Dates: start: 20070102, end: 20070731

REACTIONS (4)
  - CHOLECYSTITIS CHRONIC [None]
  - INJURY [None]
  - BILIARY DYSKINESIA [None]
  - PAIN [None]
